FAERS Safety Report 25584907 (Version 2)
Quarter: 2025Q3

REPORT INFORMATION
  Report Type: Report from Study
  Country: US (occurrence: US)
  Receive Date: 20250721
  Receipt Date: 20250904
  Transmission Date: 20251020
  Serious: Yes (Hospitalization, Other)
  Sender: BAYER HEALTHCARE PHARMACEUTICALS INC.
  Company Number: US-BAYER-2025A049480

PATIENT
  Age: 55 Year
  Sex: Female

DRUGS (3)
  1. ADEMPAS [Suspect]
     Active Substance: RIOCIGUAT
     Indication: Pulmonary arterial hypertension
  2. ADEMPAS [Suspect]
     Active Substance: RIOCIGUAT
     Indication: Pulmonary arterial hypertension
     Dosage: 2.5 MG, TID
     Route: 048
     Dates: start: 202112
  3. OPSUMIT [Concomitant]
     Active Substance: MACITENTAN

REACTIONS (8)
  - Syncope [None]
  - Hypotension [Not Recovered/Not Resolved]
  - Surgery [None]
  - Blood pressure systolic decreased [None]
  - Fatigue [None]
  - Dizziness postural [None]
  - Dizziness [Not Recovered/Not Resolved]
  - Product dose omission issue [None]

NARRATIVE: CASE EVENT DATE: 20250101
